FAERS Safety Report 9866808 (Version 2)
Quarter: 2014Q1

REPORT INFORMATION
  Report Type: Spontaneous
  Country: FI (occurrence: FI)
  Receive Date: 20140204
  Receipt Date: 20140207
  Transmission Date: 20141002
  Serious: Yes (Other)
  Sender: FDA-Public Use
  Company Number: FI-009507513-1401FIN011584

PATIENT
  Age: 52 Year
  Sex: Female
  Weight: 68 kg

DRUGS (2)
  1. NEXPLANON [Suspect]
     Dosage: UNK
     Route: 059
     Dates: start: 2011
  2. CLOPIDOGREL [Concomitant]
     Dosage: UNK

REACTIONS (4)
  - Angioplasty [Unknown]
  - Amenorrhoea [Unknown]
  - Transient ischaemic attack [Unknown]
  - Hypomenorrhoea [Unknown]
